FAERS Safety Report 6633033-5 (Version None)
Quarter: 2010Q1

REPORT INFORMATION
  Report Type: 
  Country: None (occurrence: None)
  Receive Date: 20100312
  Receipt Date: 20100225
  Transmission Date: 20100710
  Serious: Yes (Hospitalization)
  Sender: FDA-Public Use
  Company Number: PHHO2010US03768

PATIENT

DRUGS (11)
  1. AFINITOR [Suspect]
     Indication: PLEURAL MESOTHELIOMA MALIGNANT
     Dosage: UNK
     Route: 048
     Dates: start: 20100201, end: 20100218
  2. AMITRIPTYLINE HCL [Concomitant]
  3. COUMADIN [Concomitant]
     Indication: ATRIAL FIBRILLATION
  4. ATENOLOL [Concomitant]
  5. FOLIC ACID [Concomitant]
  6. GLIMEPIRIDE [Concomitant]
  7. HYDROCHLOROTHIAZIDE [Concomitant]
  8. IRBESARTAN [Concomitant]
  9. MIRALAX [Concomitant]
  10. SITAGLIPTIN [Concomitant]
  11. WARFARIN SODIUM [Concomitant]

REACTIONS (6)
  - EPISTAXIS [None]
  - FAECES DISCOLOURED [None]
  - HYPOKALAEMIA [None]
  - PANCYTOPENIA [None]
  - RECTAL HAEMORRHAGE [None]
  - THROMBOCYTOPENIA [None]
